FAERS Safety Report 5485633-6 (Version None)
Quarter: 2007Q4

REPORT INFORMATION
  Report Type: 
  Country: None (occurrence: None)
  Receive Date: 20071015
  Receipt Date: 20071008
  Transmission Date: 20080405
  Serious: Yes (Hospitalization)
  Sender: FDA-Public Use
  Company Number: FR-ELI_LILLY_AND_COMPANY-FR200707003473

PATIENT
  Sex: Female
  Weight: 36 kg

DRUGS (9)
  1. FORTEO [Suspect]
     Indication: OSTEOPOROSIS
     Dosage: 20 UG, DAILY (1/D)
     Route: 058
     Dates: start: 20070615
  2. FORTEO [Suspect]
     Dosage: 20 UG, DAILY (1/D)
     Route: 058
     Dates: start: 20070730
  3. DOLIPRANE [Concomitant]
     Indication: PAIN
     Dosage: 2 G, DAILY (1/D)
     Route: 048
  4. VASTAREL [Concomitant]
     Dosage: 35 MG, 2/D
     Route: 048
     Dates: start: 20060101
  5. NITROGLYCERIN [Concomitant]
     Dosage: 10 MG, DAILY (1/D)
     Dates: start: 20060101
  6. DIFFU K [Concomitant]
     Dosage: 2 D/F, DAILY (1/D)
     Route: 048
     Dates: start: 20060101
  7. ADANCOR [Concomitant]
     Dosage: 2 D/F, DAILY (1/D)
     Route: 048
     Dates: start: 20060101
  8. CACIT D3 [Concomitant]
     Dosage: 500 MG, 2/D
     Route: 048
     Dates: start: 20060101
  9. CORTANCYL [Concomitant]
     Dosage: 5 MG, DAILY (1/D)
     Route: 048
     Dates: start: 20060101

REACTIONS (7)
  - ABDOMINAL PAIN [None]
  - BACK PAIN [None]
  - CARDIOMEGALY [None]
  - GASTRITIS [None]
  - INFECTED SKIN ULCER [None]
  - MACROCYTOSIS [None]
  - PYREXIA [None]
